FAERS Safety Report 20136284 (Version 1)
Quarter: 2021Q4

REPORT INFORMATION
  Report Type: Spontaneous
  Country: PR (occurrence: PR)
  Receive Date: 20211201
  Receipt Date: 20211201
  Transmission Date: 20220303
  Serious: Yes (Other)
  Sender: FDA-Public Use
  Company Number: PR-PFIZER INC-2021458354

PATIENT
  Age: 61 Year
  Sex: Male

DRUGS (1)
  1. PHENYTOIN SODIUM [Suspect]
     Active Substance: PHENYTOIN SODIUM
     Dosage: UNK

REACTIONS (1)
  - Seizure [Unknown]
